FAERS Safety Report 16522394 (Version 2)
Quarter: 2019Q3

REPORT INFORMATION
  Report Type: Report from Study
  Country: ZA (occurrence: ZA)
  Receive Date: 20190702
  Receipt Date: 20190916
  Transmission Date: 20191004
  Serious: Yes (Life-Threatening, Hospitalization, Other)
  Sender: FDA-Public Use
  Company Number: ZA-SA-2019SA168803

PATIENT
  Age: 85 Year
  Sex: Female

DRUGS (7)
  1. BILOCOR [Concomitant]
     Active Substance: BISOPROLOL FUMARATE
     Dosage: 5 MG, QD (AFTER BREAKFAST)
     Dates: start: 20190101
  2. ADCO-SIMVASTATIN [Concomitant]
     Active Substance: SIMVASTATIN
     Dosage: 20 MG, QD (AFTER SUPPER)
     Dates: start: 20190101
  3. ACTRAPID [Concomitant]
     Active Substance: INSULIN HUMAN
     Dosage: 10 U, TID
     Dates: start: 20190304
  4. ECOTRIN [Concomitant]
     Active Substance: ASPIRIN
     Dosage: 81 MG, QD (AFTER SUPPER)
     Dates: start: 20190101
  5. EUTHYROX [Concomitant]
     Active Substance: LEVOTHYROXINE SODIUM
     Dosage: 50 MG, QD (AFTER LUNCH)
     Dates: start: 20190101
  6. ARYCOR [Concomitant]
     Active Substance: AMIODARONE HYDROCHLORIDE
     Dosage: 200 MG, QD (AFTER SUPPER)
     Dates: start: 20190101
  7. INSULIN GLARGINE [Suspect]
     Active Substance: INSULIN GLARGINE
     Dosage: 12 U, HS
     Dates: start: 20190429

REACTIONS (5)
  - Dementia [Not Recovered/Not Resolved]
  - Neoplasm malignant [Not Recovered/Not Resolved]
  - Eating disorder [Not Recovered/Not Resolved]
  - Hypersomnia [Not Recovered/Not Resolved]
  - Hypoglycaemia [Not Recovered/Not Resolved]
